FAERS Safety Report 24218127 (Version 1)
Quarter: 2024Q3

REPORT INFORMATION
  Report Type: Spontaneous
  Country: JP (occurrence: JP)
  Receive Date: 20240816
  Receipt Date: 20240816
  Transmission Date: 20241017
  Serious: Yes (Hospitalization)
  Sender: GUERBET
  Company Number: JP-GUERBETG_JAPAN-JP-20240087

PATIENT
  Age: 4 Decade
  Sex: Female

DRUGS (1)
  1. LIPIODOL [Suspect]
     Active Substance: ETHIODIZED OIL
     Indication: Product used for unknown indication
     Route: 015
     Dates: start: 20240625, end: 20240625

REACTIONS (1)
  - Venous intravasation [Unknown]

NARRATIVE: CASE EVENT DATE: 20240625
